FAERS Safety Report 7484347-0 (Version None)
Quarter: 2011Q2

REPORT INFORMATION
  Report Type: 
  Country: None (occurrence: None)
  Receive Date: 20110509
  Receipt Date: 20110426
  Transmission Date: 20111010
  Serious: Yes (Disabling, Other)
  Sender: FDA-Public Use
  Company Number: 2011MA004787

PATIENT
  Age: 12 Year
  Sex: Male

DRUGS (5)
  1. FLUOXETINE [Concomitant]
  2. EQUASYM [Concomitant]
  3. RISPERIDONE [Concomitant]
  4. RISPERIDONE [Suspect]
     Dates: start: 20101223, end: 20110216
  5. CONCERTA [Concomitant]

REACTIONS (3)
  - APHAGIA [None]
  - ABDOMINAL PAIN UPPER [None]
  - INSOMNIA [None]
